FAERS Safety Report 23743104 (Version 1)
Quarter: 2024Q2

REPORT INFORMATION
  Report Type: Spontaneous
  Country: GB (occurrence: GB)
  Receive Date: 20240415
  Receipt Date: 20240415
  Transmission Date: 20240716
  Serious: Yes (Other)
  Sender: FDA-Public Use
  Company Number: None

PATIENT
  Age: 30 Year
  Sex: Male
  Weight: 80 kg

DRUGS (6)
  1. SERTRALINE [Suspect]
     Active Substance: SERTRALINE HYDROCHLORIDE
     Indication: Anxiety
     Dosage: 50 MILLIGRAM, QD
     Route: 065
     Dates: start: 20240325
  2. SERTRALINE [Suspect]
     Active Substance: SERTRALINE HYDROCHLORIDE
     Dosage: 25 MILLIGRAM, QD (HALF OF THE TABLET ONCE DAILY 7 DAYS, IF TOLERATED THEN 1 TABLET DAILY)
     Route: 065
     Dates: start: 20240325
  3. MEBENDAZOLE [Concomitant]
     Active Substance: MEBENDAZOLE
     Dosage: 1 DOSAGE FORM (1 DOSAGE FORM (TO BE TAKEN IMMEDIATELY. REPEAT IN 14 DAYS IF NEEDED))
     Route: 065
     Dates: start: 20240304
  4. OMEPRAZOLE [Concomitant]
     Active Substance: OMEPRAZOLE
     Dosage: 1 DOSAGE FORM, QD
     Route: 065
     Dates: start: 20240229
  5. PROPRANOLOL [Concomitant]
     Active Substance: PROPRANOLOL HYDROCHLORIDE
     Indication: Anxiety
     Dosage: TAKE ONE TO FOUR, UP TO 3 TIMES DAILY AS NEEDED
     Route: 065
     Dates: start: 20240119
  6. STRIVIT D3 [Concomitant]
     Dosage: 20,000UNIT CAPSULES 2 WEEKLY FOR 7 WEEKS OR 800UNIT CAPSULES TWO DAILY FOR SIX MONTHS
     Route: 065
     Dates: start: 20240119, end: 20240323

REACTIONS (3)
  - Suicidal ideation [Recovered/Resolved]
  - Abnormal behaviour [Unknown]
  - Anger [Unknown]

NARRATIVE: CASE EVENT DATE: 20240401
